FAERS Safety Report 7378552-1 (Version None)
Quarter: 2011Q1

REPORT INFORMATION
  Report Type: 
  Country: None (occurrence: None)
  Receive Date: 20110328
  Receipt Date: 20110315
  Transmission Date: 20110831
  Serious: Yes (Life-Threatening, Hospitalization)
  Sender: FDA-Public Use
  Company Number: US-TYCO HEALTHCARE/MALLINCKRODT-T201100599

PATIENT
  Age: 16 Year
  Sex: Male

DRUGS (4)
  1. FLUOXETINE [Suspect]
     Indication: BIPOLAR DISORDER
     Dosage: 30 MG DAILY
  2. ARIPIPRAZOLE [Suspect]
     Indication: BIPOLAR DISORDER
     Dosage: 10 MG DAILY
  3. LITHIUM [Suspect]
     Indication: BIPOLAR DISORDER
     Dosage: 450 MG, BID
  4. CAFFEINE [Suspect]
     Dosage: APPROXIMATELY 1.6 G
     Route: 048

REACTIONS (4)
  - DRUG INTERACTION [None]
  - RHABDOMYOLYSIS [None]
  - DRUG RASH WITH EOSINOPHILIA AND SYSTEMIC SYMPTOMS [None]
  - RENAL IMPAIRMENT [None]
